FAERS Safety Report 11576641 (Version 1)
Quarter: 2015Q3

REPORT INFORMATION
  Report Type: Spontaneous
  Country: TN (occurrence: TN)
  Receive Date: 20150930
  Receipt Date: 20150930
  Transmission Date: 20151125
  Serious: Yes (Other)
  Sender: FDA-Public Use
  Company Number: TN-AMGEN-TUNSP2015100715

PATIENT
  Sex: Female

DRUGS (1)
  1. ENBREL [Suspect]
     Active Substance: ETANERCEPT
     Indication: RHEUMATOID ARTHRITIS
     Dosage: UNK, WEEKLY
     Route: 058

REACTIONS (4)
  - Madarosis [Recovered/Resolved]
  - Condition aggravated [Unknown]
  - Alopecia [Recovered/Resolved]
  - Rheumatoid arthritis [Unknown]
